FAERS Safety Report 17147219 (Version 1)
Quarter: 2019Q4

REPORT INFORMATION
  Report Type: Spontaneous
  Country: FR (occurrence: FR)
  Receive Date: 20191212
  Receipt Date: 20191212
  Transmission Date: 20200122
  Serious: Yes (Hospitalization)
  Sender: FDA-Public Use
  Company Number: FR-MYLANLABS-2019M1122159

PATIENT
  Age: 67 Year
  Sex: Male
  Weight: 87 kg

DRUGS (2)
  1. CEFUROXIME. [Suspect]
     Active Substance: CEFUROXIME
     Indication: ANTIBIOTIC THERAPY
     Dosage: 3.25 GRAM, TOTAL
     Route: 042
     Dates: start: 20190711, end: 20190711
  2. TRANEXAMIC ACID. [Suspect]
     Active Substance: TRANEXAMIC ACID
     Indication: INTRAOPERATIVE CARE
     Dosage: 3 GRAM, TOTAL
     Route: 042
     Dates: start: 20190711, end: 20190711

REACTIONS (2)
  - Product prescribing error [Recovered/Resolved]
  - Status epilepticus [Recovered/Resolved]

NARRATIVE: CASE EVENT DATE: 20190711
